FAERS Safety Report 12732278 (Version 2)
Quarter: 2020Q1

REPORT INFORMATION
  Report Type: Spontaneous
  Country: US (occurrence: US)
  Receive Date: 20160912
  Receipt Date: 20200214
  Transmission Date: 20200409
  Serious: Yes (Hospitalization)
  Sender: FDA-Public Use
  Company Number: US-JNJFOC-20160619993

PATIENT
  Age: 73 Year
  Sex: Male

DRUGS (4)
  1. PROTONIX [Concomitant]
     Active Substance: PANTOPRAZOLE SODIUM
     Indication: GASTROINTESTINAL HAEMORRHAGE
     Dosage: DRIP
  2. XARELTO [Suspect]
     Active Substance: RIVAROXABAN
     Indication: DEEP VEIN THROMBOSIS
     Route: 048
     Dates: start: 20150901, end: 2015
  3. XARELTO [Suspect]
     Active Substance: RIVAROXABAN
     Dosage: 15MG, 20MG
     Route: 048
     Dates: start: 201601, end: 20160403
  4. XARELTO [Suspect]
     Active Substance: RIVAROXABAN
     Dosage: 15MG, 20MG
     Route: 048
     Dates: start: 20151028, end: 201512

REACTIONS (1)
  - Gastrointestinal haemorrhage [Unknown]

NARRATIVE: CASE EVENT DATE: 201511
